FAERS Safety Report 10854781 (Version 1)
Quarter: 2015Q1

REPORT INFORMATION
  Report Type: Spontaneous
  Country: US (occurrence: None)
  Receive Date: 20150218
  Receipt Date: 20150218
  Transmission Date: 20150721
  Serious: Yes (Hospitalization, Disabling)
  Sender: FDA-Public Use
  Company Number: None

PATIENT
  Age: 26 Year
  Sex: Male
  Weight: 86.18 kg

DRUGS (1)
  1. EFFEXOR [Suspect]
     Active Substance: VENLAFAXINE HYDROCHLORIDE
     Indication: ANXIETY
     Dosage: 2 PILLS, ONCE DAILY, TAKEN BY MOUTH
     Route: 048

REACTIONS (3)
  - Akathisia [None]
  - Pain [None]
  - Suicide attempt [None]

NARRATIVE: CASE EVENT DATE: 20140104
